FAERS Safety Report 22085160 (Version 1)
Quarter: 2023Q1

REPORT INFORMATION
  Report Type: Spontaneous
  Country: DE (occurrence: DE)
  Receive Date: 20230310
  Receipt Date: 20230310
  Transmission Date: 20230418
  Serious: Yes (Other)
  Sender: FDA-Public Use
  Company Number: DE-TAKEDA-2023TUS019280

PATIENT
  Sex: Female

DRUGS (6)
  1. MESALAMINE [Suspect]
     Active Substance: MESALAMINE
     Indication: Crohn^s disease
     Dosage: UNK
  2. MESALAMINE [Suspect]
     Active Substance: MESALAMINE
     Indication: Colitis
  3. MESALAMINE [Suspect]
     Active Substance: MESALAMINE
     Indication: Crohn^s disease
     Dosage: UNK
  4. MESALAMINE [Suspect]
     Active Substance: MESALAMINE
     Indication: Colitis
  5. CORTISONE [Suspect]
     Active Substance: CORTISONE
     Indication: Crohn^s disease
     Dosage: UNK
  6. CORTISONE [Suspect]
     Active Substance: CORTISONE
     Indication: Colitis

REACTIONS (4)
  - Haemorrhage [Unknown]
  - Crohn^s disease [Unknown]
  - Pain [Unknown]
  - Muscle spasms [Unknown]
